FAERS Safety Report 7386117-0 (Version None)
Quarter: 2011Q1

REPORT INFORMATION
  Report Type: 
  Country: None (occurrence: None)
  Receive Date: 20110315
  Receipt Date: 20110304
  Transmission Date: 20110831
  Serious: Yes (Hospitalization)
  Sender: FDA-Public Use
  Company Number: 2011027811

PATIENT
  Age: 84 Year
  Sex: Female
  Weight: 150 kg

DRUGS (15)
  1. XOPENEX [Concomitant]
  2. TIZANIDINE [Concomitant]
  3. BROVANA (OTHER RESPIRATORY SYSTEM PRODUCTS) [Concomitant]
  4. ALBUTEROL [Concomitant]
  5. GABAPENTIN [Concomitant]
  6. HIZENTRA (IMMUNOGLUBULIN HUMAN NORMAL) [Suspect]
     Indication: IMMUNODEFICIENCY COMMON VARIABLE
     Dosage: 1X/WEEK, INFUSED 35 ML WEEKLY VIA 4 SITES, SUBCUTANEOUS
     Route: 058
     Dates: start: 20101028
  7. HIZENTRA (IMMUNOGLUBULIN HUMAN NORMAL) [Suspect]
  8. FENOFIBRATE [Concomitant]
  9. TRIAMTERENE [Concomitant]
  10. VICODIN [Concomitant]
  11. ALVESCO [Concomitant]
  12. FLUOROURACIL [Concomitant]
  13. GLIPIZIDE [Concomitant]
  14. HIZENTRA (IMMUNOGLUBULIN HUMAN NORMAL) [Suspect]
  15. MIRAPEX [Concomitant]

REACTIONS (2)
  - DRUG INEFFECTIVE [None]
  - PNEUMONIA [None]
